FAERS Safety Report 8957179 (Version 3)
Quarter: 2013Q1

REPORT INFORMATION
  Report Type: Spontaneous
  Country: US (occurrence: US)
  Receive Date: 20121211
  Receipt Date: 20130116
  Transmission Date: 20140127
  Serious: Yes (Other)
  Sender: FDA-Public Use
  Company Number: US-FRI-1000040938

PATIENT
  Age: 59 Year
  Sex: Male
  Weight: 72.5 kg

DRUGS (7)
  1. VIIBRYD [Suspect]
     Indication: DEPRESSION
     Dates: start: 201201, end: 2012
  2. VIIBRYD [Suspect]
     Indication: DEPRESSION
     Dosage: 40 MG
     Route: 048
     Dates: start: 201201, end: 201301
  3. VIIBRYD [Suspect]
     Dosage: 20 MG
     Route: 048
     Dates: start: 201301, end: 201301
  4. VIIBRYD [Suspect]
     Dosage: 5 MG
     Route: 048
     Dates: start: 201301, end: 20130113
  5. ADDERALL [Suspect]
     Dates: start: 201209
  6. WELLBUTRIN [Concomitant]
  7. TRAZODONE [Concomitant]
     Indication: INSOMNIA
     Dosage: 300 MG AT BEDTIME
     Route: 048

REACTIONS (7)
  - Rectal haemorrhage [Recovering/Resolving]
  - Suicidal ideation [Not Recovered/Not Resolved]
  - Decreased appetite [Recovered/Resolved]
  - Weight decreased [Recovered/Resolved]
  - Paraesthesia [Recovered/Resolved]
  - Insomnia [Not Recovered/Not Resolved]
  - Anxiety [Not Recovered/Not Resolved]
